FAERS Safety Report 5483033-6 (Version None)
Quarter: 2007Q4

REPORT INFORMATION
  Report Type: 
  Country: None (occurrence: None)
  Receive Date: 20071011
  Receipt Date: 20071005
  Transmission Date: 20080405
  Serious: Yes (Other)
  Sender: FDA-Public Use
  Company Number: US-SHR-US-2006-036330

PATIENT
  Age: 49 Year
  Sex: Female

DRUGS (1)
  1. BETASERON [Suspect]
     Indication: RELAPSING-REMITTING MULTIPLE SCLEROSIS
     Dosage: 8 MIU, EVERY 2D
     Route: 058
     Dates: start: 20030611

REACTIONS (8)
  - ALOPECIA [None]
  - CONGENITAL EYE DISORDER [None]
  - FAECAL INCONTINENCE [None]
  - FOLLICULITIS [None]
  - IMPAIRED HEALING [None]
  - IRRITABLE BOWEL SYNDROME [None]
  - SCAB [None]
  - URINARY INCONTINENCE [None]
